FAERS Safety Report 16371971 (Version 1)
Quarter: 2019Q2

REPORT INFORMATION
  Report Type: Spontaneous
  Country: US (occurrence: US)
  Receive Date: 20190424
  Receipt Date: 20190424
  Transmission Date: 20190711
  Serious: Yes (Disabling, Other)
  Sender: FDA-Public Use
  Company Number: None

PATIENT
  Age: 70 Year
  Sex: Male
  Weight: 76.2 kg

DRUGS (16)
  1. MILLED FLAX SEED [Concomitant]
  2. GINGER ROOT [Concomitant]
     Active Substance: GINGER
  3. ANDROGEL [Suspect]
     Active Substance: TESTOSTERONE
  4. SIMETHICON (GAS RELIEF) [Concomitant]
  5. GINGER TEA [Concomitant]
  6. ACETAMINOPHEN. [Concomitant]
     Active Substance: ACETAMINOPHEN
  7. PYRIDOSTIGMINE [Concomitant]
     Active Substance: PYRIDOSTIGMINE
  8. VITAMIN B COMPLEX [Concomitant]
     Active Substance: CYANOCOBALAMIN\DEXPANTHENOL\NIACINAMIDE\PYRIDOXINE HYDROCHLORIDE\RIBOFLAVIN 5^-PHOSPHATE SODIUM\THIAMINE HYDROCHLORIDE\VITAMIN B COMPLEX
  9. CALCIUM W/VIT D [Concomitant]
  10. MULTI VITAMIN [Concomitant]
     Active Substance: VITAMINS
  11. VALSARTAN. [Concomitant]
     Active Substance: VALSARTAN
  12. LOPERAMIDE HCL [Concomitant]
     Active Substance: LOPERAMIDE HYDROCHLORIDE
  13. CINAMON [Concomitant]
  14. SILDENAFIL CITRATE 100MG TAB [Suspect]
     Active Substance: SILDENAFIL CITRATE
     Indication: ERECTILE DYSFUNCTION
     Route: 048
  15. BROMIDE [Concomitant]
  16. BIOTIN [Concomitant]
     Active Substance: BIOTIN

REACTIONS (7)
  - Coccydynia [None]
  - Feeling abnormal [None]
  - Renal pain [None]
  - Walking aid user [None]
  - Pain [None]
  - Musculoskeletal disorder [None]
  - Renal disorder [None]

NARRATIVE: CASE EVENT DATE: 20190404
